FAERS Safety Report 11772808 (Version 1)
Quarter: 2015Q4

REPORT INFORMATION
  Report Type: Spontaneous
  Country: US (occurrence: US)
  Receive Date: 20151124
  Receipt Date: 20151124
  Transmission Date: 20160304
  Serious: Yes (Hospitalization)
  Sender: FDA-Public Use
  Company Number: US-MALLINCKRODT-T201505097

PATIENT
  Age: 39 Year
  Sex: Male

DRUGS (1)
  1. GABLOFEN [Suspect]
     Active Substance: BACLOFEN
     Indication: MUSCLE SPASTICITY
     Dosage: 530 MCG/DAY
     Route: 037
     Dates: start: 20150921

REACTIONS (2)
  - Drug withdrawal syndrome [Unknown]
  - Device failure [Unknown]

NARRATIVE: CASE EVENT DATE: 201509
